FAERS Safety Report 26190475 (Version 1)
Quarter: 2025Q4

REPORT INFORMATION
  Report Type: Spontaneous
  Country: BR (occurrence: BR)
  Receive Date: 20251223
  Receipt Date: 20251223
  Transmission Date: 20260117
  Serious: Yes (Hospitalization, Other)
  Sender: NOVARTIS
  Company Number: BR-002147023-NVSC2025BR194668

PATIENT
  Age: 73 Year
  Sex: Female

DRUGS (2)
  1. DIOVAN [Suspect]
     Active Substance: VALSARTAN
     Indication: Product used for unknown indication
     Dosage: 80 MG
     Route: 065
  2. DIOVAN [Suspect]
     Active Substance: VALSARTAN
     Dosage: 160 MG
     Route: 065

REACTIONS (9)
  - Red blood cell abnormality [Not Recovered/Not Resolved]
  - White blood cell disorder [Not Recovered/Not Resolved]
  - Blood pressure decreased [Unknown]
  - Neoplasm malignant [Not Recovered/Not Resolved]
  - Immunodeficiency [Recovering/Resolving]
  - Lymphoma [Recovering/Resolving]
  - Alopecia [Not Recovered/Not Resolved]
  - Illness [Unknown]
  - Fear [Unknown]

NARRATIVE: CASE EVENT DATE: 20251027
